FAERS Safety Report 4420560-4 (Version None)
Quarter: 2004Q3

REPORT INFORMATION
  Report Type: 
  Country: None (occurrence: None)
  Receive Date: 20040809
  Receipt Date: 20040326
  Transmission Date: 20050211
  Serious: No
  Sender: FDA-Public Use
  Company Number: US-GLAXOSMITHKLINE-A0505230A

PATIENT
  Age: 52 Year
  Sex: Female

DRUGS (12)
  1. PAXIL [Suspect]
     Indication: DEPRESSION
     Dosage: 25MG PER DAY
     Route: 048
     Dates: start: 20010201
  2. SYNTHROID [Concomitant]
  3. COREG [Concomitant]
  4. POTASSIUM CL [Concomitant]
  5. TORSEMIDE [Concomitant]
  6. NULEV [Concomitant]
  7. AMIODARONE HCL [Concomitant]
  8. ASPIRIN [Concomitant]
  9. AMBIEN [Concomitant]
  10. DIAZEPAM [Concomitant]
  11. TYLENOL W/ CODEINE NO. 4 [Concomitant]
  12. ENDOCET [Concomitant]

REACTIONS (2)
  - DRUG INEFFECTIVE [None]
  - WEIGHT INCREASED [None]
